FAERS Safety Report 19249423 (Version 9)
Quarter: 2021Q3

REPORT INFORMATION
  Report Type: Report from Study
  Country: FR (occurrence: FR)
  Receive Date: 20210512
  Receipt Date: 20210924
  Transmission Date: 20211014
  Serious: Yes (Life-Threatening, Hospitalization, Other)
  Sender: FDA-Public Use
  Company Number: FR-SA-2021SA135612

PATIENT
  Age: 18 Year
  Sex: Male
  Weight: 62.2 kg

DRUGS (76)
  1. DEXAMETHASONE. [Suspect]
     Active Substance: DEXAMETHASONE
     Dosage: 10 MG/M2; DAYS ?3, ?2, ?1, 1,8, AND 15 FOR INDUCTION PERIODS
     Route: 042
  2. CYTARABINE. [Suspect]
     Active Substance: CYTARABINE
     Route: 037
  3. IDARUBICIN [Suspect]
     Active Substance: IDARUBICIN
     Dosage: 10 MG/M2
     Route: 042
  4. DEXAMETHASONE. [Concomitant]
     Active Substance: DEXAMETHASONE
     Indication: PROPHYLAXIS
     Dosage: 17.5 MG, 1X
     Route: 042
     Dates: start: 20210422, end: 20210422
  5. ONDANSETRON [Concomitant]
     Active Substance: ONDANSETRON
     Indication: PROPHYLAXIS
     Dosage: UNK
     Route: 042
     Dates: start: 20210421, end: 20210422
  6. ONDANSETRON [Concomitant]
     Active Substance: ONDANSETRON
     Dosage: UNK
     Route: 042
     Dates: start: 20210505, end: 20210506
  7. FASTURTEC [Concomitant]
     Active Substance: RASBURICASE
     Indication: PROPHYLAXIS
     Dosage: UNK
     Route: 042
     Dates: start: 20210422, end: 20210422
  8. ACTISKENAN [Concomitant]
     Active Substance: MORPHINE SULFATE
     Indication: PROPHYLAXIS
     Dosage: UNK
     Route: 048
     Dates: start: 20210422, end: 20210422
  9. AMIKACINE [AMIKACIN] [Concomitant]
     Active Substance: AMIKACIN
     Dosage: UNK
     Route: 042
     Dates: start: 20210424, end: 20210426
  10. HYDROCORTISONE. [Concomitant]
     Active Substance: HYDROCORTISONE
     Indication: PROPHYLAXIS
     Dosage: UNK, INTRATHECAL
     Route: 065
     Dates: start: 20210423, end: 20210423
  11. PLATELETS [Concomitant]
     Active Substance: HUMAN PLATELET, ALLOGENIC
     Dosage: UNK
     Route: 042
     Dates: start: 20210510, end: 20210510
  12. NACL [Concomitant]
     Active Substance: SODIUM CHLORIDE
     Dosage: UNK
     Route: 055
     Dates: start: 20210429, end: 20210429
  13. NEFOPAM [Concomitant]
     Active Substance: NEFOPAM
     Dosage: UNK
     Route: 042
     Dates: start: 20210513
  14. DEXAMETHASONE. [Suspect]
     Active Substance: DEXAMETHASONE
     Indication: ACUTE MYELOID LEUKAEMIA
     Dosage: 10 MG/M2; DAYS ?3, ?2, ?1, 1,8, AND 15 FOR INDUCTION PERIODS
     Route: 042
  15. CYTARABINE. [Suspect]
     Active Substance: CYTARABINE
     Indication: ACUTE MYELOID LEUKAEMIA
     Dosage: UNK
     Route: 037
  16. DEXAMETHASONE. [Concomitant]
     Active Substance: DEXAMETHASONE
     Dosage: UNK
     Route: 042
     Dates: start: 20210504, end: 20210511
  17. LASILIX [FUROSEMIDE] [Concomitant]
     Active Substance: FUROSEMIDE
     Dosage: UNK
     Route: 042
     Dates: start: 20210430, end: 20210430
  18. HYDROXYZINE [Concomitant]
     Active Substance: HYDROXYZINE HYDROCHLORIDE
     Dosage: UNK
     Route: 042
     Dates: start: 20210505, end: 20210513
  19. HYDROXYZINE [Concomitant]
     Active Substance: HYDROXYZINE HYDROCHLORIDE
     Dosage: UNK
     Route: 042
     Dates: start: 20210507, end: 20210507
  20. GENTAMICINE [GENTAMICIN] [Concomitant]
     Active Substance: GENTAMICIN
     Indication: PROPHYLAXIS
     Dosage: UNK
     Route: 048
     Dates: start: 20210421
  21. FUNGIZONE [Concomitant]
     Active Substance: AMPHOTERICIN B
     Indication: PROPHYLAXIS
     Dosage: UNK
     Route: 048
     Dates: start: 20210421
  22. BLOOD CELLS, PACKED HUMAN [Concomitant]
     Active Substance: HUMAN RED BLOOD CELL
     Dosage: UNK
     Route: 042
     Dates: start: 20210429, end: 20210429
  23. AMBISOME [Concomitant]
     Active Substance: AMPHOTERICIN B
     Dosage: UNK
     Route: 042
     Dates: start: 20210428, end: 20210505
  24. SPASFON [PHLOROGLUCINOL] [Concomitant]
     Active Substance: PHLOROGLUCINOL
     Dosage: UNK
     Route: 042
     Dates: start: 20210512, end: 20210513
  25. LARGACTIL [CHLORPROMAZINE] [Concomitant]
     Active Substance: CHLORPROMAZINE
     Indication: PROPHYLAXIS
     Dosage: UNK
     Route: 042
     Dates: start: 20210508, end: 20210514
  26. PARACETAMOL [Concomitant]
     Active Substance: ACETAMINOPHEN
     Dosage: UNK
     Route: 042
     Dates: start: 20210507, end: 20210508
  27. PARACETAMOL [Concomitant]
     Active Substance: ACETAMINOPHEN
     Dosage: UNK
     Route: 042
     Dates: start: 20210513, end: 20210515
  28. MONTELUKAST [Concomitant]
     Active Substance: MONTELUKAST SODIUM
     Indication: PROPHYLAXIS
     Dosage: 10 MG, 1X
     Route: 048
     Dates: start: 20210422, end: 20210422
  29. KALINOX [Concomitant]
     Active Substance: NITROUS OXIDE\OXYGEN
     Indication: PROPHYLAXIS
     Dosage: UNK
     Route: 055
     Dates: start: 20210422, end: 20210423
  30. ATARAX [Concomitant]
     Active Substance: HYDROXYZINE HYDROCHLORIDE
     Indication: PROPHYLAXIS
     Dosage: UNK
     Route: 048
     Dates: start: 20210422, end: 20210423
  31. ATARAX [Concomitant]
     Active Substance: HYDROXYZINE HYDROCHLORIDE
     Dosage: UNK
     Route: 048
     Dates: start: 20210428, end: 20210512
  32. VITAMIN K [Concomitant]
     Active Substance: PHYTONADIONE
     Dosage: UNK
     Route: 051
     Dates: start: 20210421, end: 20210604
  33. PALONOSETRON. [Concomitant]
     Active Substance: PALONOSETRON HYDROCHLORIDE
     Indication: PROPHYLAXIS
     Dosage: UNK
     Route: 042
     Dates: start: 20210506, end: 20210506
  34. AMINOMIX [AMINO ACIDS NOS;ELECTROLYTES NOS;GLUCOSE] [Concomitant]
     Active Substance: AMINO ACIDS\DEXTROSE\ELECTROLYTES NOS
     Dosage: UNK
     Route: 042
     Dates: start: 20210506, end: 20210510
  35. VIALEBEX [Concomitant]
     Active Substance: ALBUMIN HUMAN
     Dosage: UNK
     Route: 042
     Dates: start: 20210430, end: 20210430
  36. ISATUXIMAB [Suspect]
     Active Substance: ISATUXIMAB
     Indication: ACUTE MYELOID LEUKAEMIA
     Dosage: 20 MG, QW
     Route: 042
     Dates: start: 20210422, end: 20210422
  37. HYDREA [Concomitant]
     Active Substance: HYDROXYUREA
     Dosage: UNK
     Route: 042
     Dates: start: 20210501, end: 20210503
  38. PARACETAMOL [Concomitant]
     Active Substance: ACETAMINOPHEN
     Indication: PROPHYLAXIS
     Dosage: UNK
     Route: 048
     Dates: start: 20210422, end: 20210422
  39. PARACETAMOL [Concomitant]
     Active Substance: ACETAMINOPHEN
     Dosage: UNK
     Route: 042
     Dates: start: 20210421, end: 20210422
  40. ONDANSETRON [Concomitant]
     Active Substance: ONDANSETRON
     Dosage: UNK
     Route: 042
     Dates: start: 20210429, end: 20210430
  41. VITABACT [Concomitant]
     Active Substance: PICLOXYDINE DIHYDROCHLORIDE
     Indication: PROPHYLAXIS
     Dosage: UNK
     Route: 047
     Dates: start: 20210506, end: 20210513
  42. IDARUBICIN [Suspect]
     Active Substance: IDARUBICIN
     Indication: ACUTE MYELOID LEUKAEMIA
     Dosage: 10 MG/M2
     Route: 042
  43. HYDREA [Concomitant]
     Active Substance: HYDROXYUREA
     Indication: PROPHYLAXIS
     Dosage: UNK
     Route: 042
     Dates: start: 20210421, end: 20210422
  44. PARACETAMOL [Concomitant]
     Active Substance: ACETAMINOPHEN
     Dosage: UNK
     Route: 042
     Dates: start: 20210504, end: 20210504
  45. HYDROXYZINE [Concomitant]
     Active Substance: HYDROXYZINE HYDROCHLORIDE
     Indication: PROPHYLAXIS
     Dosage: UNK
     Route: 042
     Dates: start: 20210422, end: 20210423
  46. AMIKACINE [AMIKACIN] [Concomitant]
     Active Substance: AMIKACIN
     Dosage: UNK
     Route: 042
     Dates: start: 20210420, end: 20210420
  47. BLOOD CELLS, PACKED HUMAN [Concomitant]
     Active Substance: HUMAN RED BLOOD CELL
     Dosage: UNK
     Route: 042
     Dates: start: 20210513, end: 20210513
  48. FLUDARABINE [Suspect]
     Active Substance: FLUDARABINE PHOSPHATE
     Dosage: 30 MG/M2, DAYS 8 TO 12, 30 MINUTE INFUSION AFTER G?CSF ADMINISTRATION
     Route: 042
  49. OXYGEN. [Concomitant]
     Active Substance: OXYGEN
     Dosage: TOTAL DAILY DOSE: 2
     Route: 045
     Dates: start: 20210422, end: 20210422
  50. POLARAMINE [Concomitant]
     Active Substance: DEXCHLORPHENIRAMINE MALEATE
     Indication: PROPHYLAXIS
     Dosage: 5 MG, 1X
     Route: 042
     Dates: start: 20210422, end: 20210422
  51. BACTRIM [Concomitant]
     Active Substance: SULFAMETHOXAZOLE\TRIMETHOPRIM
     Indication: PROPHYLAXIS
     Dosage: UNK
     Route: 048
     Dates: start: 20210423
  52. CEFTAZIDIME. [Concomitant]
     Active Substance: CEFTAZIDIME
     Dosage: UNK
     Route: 042
     Dates: start: 20210420, end: 20210423
  53. ATARAX [Concomitant]
     Active Substance: HYDROXYZINE HYDROCHLORIDE
     Dosage: 100 MG, 1X
     Route: 048
     Dates: start: 20210422, end: 20210422
  54. PIPERACILLINE TAZOBACTAM [Concomitant]
     Active Substance: PIPERACILLIN SODIUM\TAZOBACTAM SODIUM
     Dosage: UNK
     Route: 042
     Dates: start: 20210428, end: 20210515
  55. REFRESH CELLUVISC [Concomitant]
     Active Substance: CARBOXYMETHYLCELLULOSE SODIUM
     Indication: PROPHYLAXIS
     Dosage: UNK
     Route: 047
     Dates: start: 20210506, end: 20210513
  56. PLATELETS [Concomitant]
     Active Substance: HUMAN PLATELET, ALLOGENIC
     Dosage: UNK
     Route: 042
     Dates: start: 20210428, end: 20210428
  57. PLITICAN [Concomitant]
     Active Substance: ALIZAPRIDE HYDROCHLORIDE
     Indication: PROPHYLAXIS
     Dosage: UNK
     Route: 042
     Dates: start: 20210506, end: 20210508
  58. NALBUPHINE [Concomitant]
     Active Substance: NALBUPHINE
     Dosage: UNK
     Route: 042
     Dates: start: 20210513, end: 20210513
  59. FLUDARABINE [Suspect]
     Active Substance: FLUDARABINE PHOSPHATE
     Indication: ACUTE MYELOID LEUKAEMIA
     Dosage: 30 MG/M2
     Route: 042
  60. PARACETAMOL [Concomitant]
     Active Substance: ACETAMINOPHEN
     Dosage: UNK
     Route: 042
     Dates: start: 20210510
  61. LASILIX [FUROSEMIDE] [Concomitant]
     Active Substance: FUROSEMIDE
     Indication: PROPHYLAXIS
     Dosage: UNK
     Route: 042
     Dates: start: 20210423, end: 20210424
  62. BLOOD CELLS, PACKED HUMAN [Concomitant]
     Active Substance: HUMAN RED BLOOD CELL
     Dosage: UNK
     Route: 042
     Dates: start: 20210511, end: 20210511
  63. CAFEINE [Concomitant]
     Active Substance: CAFFEINE
     Dosage: UNK
     Route: 048
     Dates: start: 20210421, end: 20210421
  64. NOXAFIL [Concomitant]
     Active Substance: POSACONAZOLE
     Dosage: UNK
     Route: 042
     Dates: start: 20210506, end: 20210527
  65. PLATELETS [Concomitant]
     Active Substance: HUMAN PLATELET, ALLOGENIC
     Dosage: UNK
     Route: 042
     Dates: start: 20210512, end: 20210512
  66. SMOFKABIVEN [Concomitant]
     Active Substance: AMINO ACIDS\DEXTROSE\ELECTROLYTES NOS\SOYBEAN OIL
     Dosage: UNK
     Route: 042
     Dates: start: 20210504, end: 20210505
  67. SMOFKABIVEN [Concomitant]
     Active Substance: AMINO ACIDS\DEXTROSE\ELECTROLYTES NOS\SOYBEAN OIL
     Dosage: UNK
     Route: 042
     Dates: start: 20210510, end: 20210617
  68. ISATUXIMAB [Suspect]
     Active Substance: ISATUXIMAB
     Dosage: 20 MG/KG, QW
     Route: 042
  69. DOXORUBICIN [Suspect]
     Active Substance: DOXORUBICIN
     Indication: ACUTE MYELOID LEUKAEMIA
     Dosage: 25 MG/M2
     Route: 042
  70. DOXORUBICIN [Suspect]
     Active Substance: DOXORUBICIN
     Dosage: 25 MG/M2
     Route: 042
  71. MONTELUKAST [Concomitant]
     Active Substance: MONTELUKAST SODIUM
     Dosage: UNK
     Route: 048
     Dates: start: 20210429, end: 20210507
  72. VANCOMYCINE [VANCOMYCIN] [Concomitant]
     Active Substance: VANCOMYCIN
     Dosage: UNK
     Route: 042
     Dates: start: 20210421, end: 20210426
  73. METHOTREXATE. [Concomitant]
     Active Substance: METHOTREXATE
     Indication: PROPHYLAXIS
     Dosage: UNK, INTRATHECAL
     Route: 065
     Dates: start: 20210423, end: 20210423
  74. ARACYTINE [Concomitant]
     Active Substance: CYTARABINE
     Indication: PROPHYLAXIS
     Dosage: UNK, INTRATHECAL
     Route: 065
     Dates: start: 20210423, end: 20210423
  75. CIPROFLOXACINE [CIPROFLOXACIN] [Concomitant]
     Active Substance: CIPROFLOXACIN
     Dosage: UNK
     Route: 042
     Dates: start: 20210428, end: 20210513
  76. SPASFON [PHLOROGLUCINOL] [Concomitant]
     Active Substance: PHLOROGLUCINOL
     Dosage: UNK
     Route: 042
     Dates: start: 20210424, end: 20210425

REACTIONS (4)
  - Hypotension [Recovered/Resolved]
  - Pneumonia [Recovered/Resolved]
  - Cytokine release syndrome [Recovered/Resolved]
  - Infusion related reaction [Recovered/Resolved]

NARRATIVE: CASE EVENT DATE: 20210422
